FAERS Safety Report 9445814 (Version 2)
Quarter: 2014Q1

REPORT INFORMATION
  Report Type: Spontaneous
  Country: US (occurrence: US)
  Receive Date: 20130807
  Receipt Date: 20140121
  Transmission Date: 20141002
  Serious: Yes (Hospitalization)
  Sender: FDA-Public Use
  Company Number: US-B.I. PHARMACEUTICALS,INC./RIDGEFIELD-2013-BI-23852BP

PATIENT
  Age: 74 Year
  Sex: Female
  Weight: 95.25 kg

DRUGS (7)
  1. PRADAXA [Suspect]
  2. LISINOPRIL [Concomitant]
     Dates: start: 201107, end: 201109
  3. LEVOTHYROXINE [Concomitant]
  4. METOLAZONE [Concomitant]
  5. HYDROCODONE [Concomitant]
     Dates: start: 201106, end: 201108
  6. ISOSORBIDE MONONIT [Concomitant]
     Dates: start: 201105, end: 201108
  7. VITAMIN D [Concomitant]

REACTIONS (1)
  - Lower gastrointestinal haemorrhage [Unknown]
